FAERS Safety Report 20369941 (Version 3)
Quarter: 2022Q2

REPORT INFORMATION
  Report Type: Report from Study
  Country: CA (occurrence: CA)
  Receive Date: 20220124
  Receipt Date: 20220518
  Transmission Date: 20220721
  Serious: Yes (Other)
  Sender: FDA-Public Use
  Company Number: CA-SAMSUNG BIOEPIS-SB-2022-00700

PATIENT
  Age: 31 Year
  Sex: Female
  Weight: 54.4 kg

DRUGS (2)
  1. RENFLEXIS [Suspect]
     Active Substance: INFLIXIMAB-ABDA
     Indication: Colitis ulcerative
     Route: 042
     Dates: start: 20210917, end: 20220105
  2. RENFLEXIS [Suspect]
     Active Substance: INFLIXIMAB-ABDA
     Route: 042
     Dates: start: 20220310, end: 20220421

REACTIONS (7)
  - Dyspnoea [Unknown]
  - Throat tightness [Recovered/Resolved]
  - Flushing [Unknown]
  - Lacrimation increased [Unknown]
  - Cough [Unknown]
  - Incorrect drug administration rate [Unknown]
  - Product use issue [Unknown]

NARRATIVE: CASE EVENT DATE: 20220105
